FAERS Safety Report 8031261-8 (Version None)
Quarter: 2012Q1

REPORT INFORMATION
  Report Type: 
  Country: None (occurrence: None)
  Receive Date: 20120109
  Receipt Date: 20120105
  Transmission Date: 20120608
  Serious: Yes (Other)
  Sender: FDA-Public Use
  Company Number: US-MERCK-1108USA01225

PATIENT
  Age: 74 Year
  Sex: Female

DRUGS (5)
  1. PRAVASTATIN SODIUM [Concomitant]
     Route: 065
     Dates: start: 19980101
  2. RAMIPRIL [Concomitant]
     Route: 065
     Dates: start: 19960101
  3. FOSAMAX [Suspect]
     Indication: PROPHYLAXIS
     Route: 048
     Dates: start: 19990915, end: 20080210
  4. ATENOLOL [Concomitant]
     Route: 065
     Dates: start: 19980101
  5. SYNTHROID [Concomitant]
     Route: 065
     Dates: start: 20000101

REACTIONS (4)
  - ANXIETY [None]
  - DRUG ADMINISTRATION ERROR [None]
  - FEMUR FRACTURE [None]
  - DEPRESSION [None]
